FAERS Safety Report 26025347 (Version 1)
Quarter: 2025Q4

REPORT INFORMATION
  Report Type: Report from Study
  Country: US (occurrence: US)
  Receive Date: 20251111
  Receipt Date: 20251111
  Transmission Date: 20260118
  Serious: Yes (Other)
  Sender: ABBVIE
  Company Number: US-ABBVIE-6534067

PATIENT
  Age: 69 Year
  Sex: Female

DRUGS (2)
  1. CREON [Suspect]
     Active Substance: PANCRELIPASE AMYLASE\PANCRELIPASE LIPASE\PANCRELIPASE PROTEASE
     Indication: Product used for unknown indication
     Dosage: LAST ADMIN DATE: 2025
     Route: 048
     Dates: start: 20250802
  2. CREON [Suspect]
     Active Substance: PANCRELIPASE AMYLASE\PANCRELIPASE LIPASE\PANCRELIPASE PROTEASE
     Indication: Product used for unknown indication
     Dosage: FIRST ADMIN DATE: 2025
     Route: 048

REACTIONS (4)
  - Upper gastrointestinal haemorrhage [Recovered/Resolved]
  - Pancreatic failure [Not Recovered/Not Resolved]
  - Nasopharyngitis [Not Recovered/Not Resolved]
  - Bacterial infection [Unknown]

NARRATIVE: CASE EVENT DATE: 20250101
